FAERS Safety Report 4871371-7 (Version None)
Quarter: 2006Q1

REPORT INFORMATION
  Report Type: 
  Country: None (occurrence: None)
  Receive Date: 20060103
  Receipt Date: 20051228
  Transmission Date: 20060701
  Serious: Yes (Life-Threatening, Hospitalization)
  Sender: FDA-Public Use
  Company Number: US-MERCK-0512USA03902

PATIENT
  Age: 72 Year
  Sex: Male
  Weight: 101 kg

DRUGS (11)
  1. PRINIVIL [Suspect]
     Route: 048
  2. COREG [Suspect]
     Indication: CARDIAC DISORDER
     Route: 048
     Dates: start: 20050831, end: 20050831
  3. COREG [Suspect]
     Route: 048
     Dates: start: 20050805, end: 20050828
  4. COREG [Suspect]
     Route: 048
     Dates: start: 20050828, end: 20050801
  5. COREG [Suspect]
     Route: 048
     Dates: end: 20050901
  6. FUROSEMIDE [Suspect]
     Route: 065
  7. WARFARIN SODIUM [Suspect]
     Route: 065
  8. AMIODARONE [Suspect]
     Route: 065
  9. AMLODIPINE MALEATE [Suspect]
     Route: 065
  10. LIPITOR [Suspect]
     Route: 065
  11. POTASSIUM (UNSPECIFIED) [Suspect]
     Route: 065

REACTIONS (15)
  - ADVERSE EVENT [None]
  - ASTHENIA [None]
  - DEPRESSED LEVEL OF CONSCIOUSNESS [None]
  - DIZZINESS [None]
  - DRUG INTERACTION [None]
  - DYSPNOEA [None]
  - EXERCISE TOLERANCE DECREASED [None]
  - FOAMING AT MOUTH [None]
  - HEADACHE [None]
  - HEART RATE DECREASED [None]
  - HYPOTENSION [None]
  - LOSS OF CONSCIOUSNESS [None]
  - NAUSEA [None]
  - SYNCOPE [None]
  - VERTIGO [None]
